FAERS Safety Report 9148826 (Version 1)
Quarter: 2013Q1

REPORT INFORMATION
  Report Type: Spontaneous
  Country: ES (occurrence: None)
  Receive Date: 20130131
  Receipt Date: 20130131
  Transmission Date: 20140127
  Serious: Yes (Hospitalization)
  Sender: FDA-Public Use
  Company Number: 2013S1000127

PATIENT
  Age: 52 Year
  Sex: Female

DRUGS (6)
  1. ALIPZA [Suspect]
     Indication: HYPERLIPIDAEMIA
     Route: 048
  2. VALSARTAN [Suspect]
     Indication: CARDIAC FAILURE
     Route: 048
     Dates: end: 20121220
  3. HYDROCHLOROTHIAZIDE (HYDROCHLOROTHIAZIDE) [Suspect]
     Indication: CARDIAC FAILURE
     Route: 048
     Dates: end: 20121020
  4. MYCOPHENOLATE MOFETIL (MYCOPHENOLATE MOFETIL) [Suspect]
     Indication: RENAL TRANSPLANT
     Route: 048
     Dates: start: 2007, end: 20121221
  5. TACROLIMUS [Suspect]
     Indication: RENAL TRANSPLANT
     Route: 048
     Dates: start: 2007
  6. DACORTIN [Concomitant]

REACTIONS (6)
  - Renal failure acute [None]
  - Drug interaction [None]
  - Hypotension [None]
  - Dehydration [None]
  - Fluid intake reduced [None]
  - Hypophagia [None]
